FAERS Safety Report 6107601-3 (Version None)
Quarter: 2009Q1

REPORT INFORMATION
  Report Type: 
  Country: None (occurrence: None)
  Receive Date: 20090309
  Receipt Date: 20090304
  Transmission Date: 20090719
  Serious: Yes (Death, Life-Threatening, Hospitalization, Other)
  Sender: FDA-Public Use
  Company Number: TW-ASTRAZENECA-2009AP01474

PATIENT
  Sex: Female

DRUGS (2)
  1. MARCAINE [Suspect]
     Dosage: 6CC STAT
     Route: 064
     Dates: start: 20090208, end: 20090208
  2. LIDOCAINE [Concomitant]
     Dates: start: 20090207

REACTIONS (2)
  - BRADYCARDIA FOETAL [None]
  - BRAIN DEATH [None]
